FAERS Safety Report 25913977 (Version 2)
Quarter: 2025Q4

REPORT INFORMATION
  Report Type: Spontaneous
  Country: US (occurrence: US)
  Receive Date: 20251013
  Receipt Date: 20251110
  Transmission Date: 20260117
  Serious: No
  Sender: BAYER HEALTHCARE PHARMACEUTICALS INC.
  Company Number: US-BAYER-2025A131794

PATIENT
  Age: 80 Year
  Sex: Male

DRUGS (1)
  1. NUBEQA [Suspect]
     Active Substance: DAROLUTAMIDE
     Dosage: UNK

REACTIONS (4)
  - Pain in extremity [None]
  - Paraesthesia [Not Recovered/Not Resolved]
  - Arthritis [None]
  - Bone disorder [None]

NARRATIVE: CASE EVENT DATE: 20251001
